FAERS Safety Report 25986266 (Version 1)
Quarter: 2025Q4

REPORT INFORMATION
  Report Type: Spontaneous
  Country: EU (occurrence: EU)
  Receive Date: 20251031
  Receipt Date: 20251031
  Transmission Date: 20260118
  Serious: Yes (Other)
  Sender: BOEHRINGER INGELHEIM
  Company Number: EU-EMB-M202407040-1

PATIENT
  Sex: Female

DRUGS (10)
  1. SPIRIVA [Suspect]
     Active Substance: TIOTROPIUM BROMIDE MONOHYDRATE
     Indication: Cystic fibrosis
     Dosage: DOSAGE 1-2 UNITS PER DAY/CORRESPONDS TO 2.5-5 ?G/D
     Dates: start: 202312, end: 202409
  2. IPRATROPIUM [Suspect]
     Active Substance: IPRATROPIUM
     Indication: Cystic fibrosis
     Dates: start: 202312, end: 202409
  3. SERTRALINE [Suspect]
     Active Substance: SERTRALINE HYDROCHLORIDE
     Indication: Depression
     Dates: start: 202312, end: 202409
  4. FLUTIFORM [Suspect]
     Active Substance: FLUTIFORM
     Indication: Cystic fibrosis
     Dosage: DOSAGE 125/5 ?G/D
     Dates: start: 202312, end: 202409
  5. PANTOPRAZOLE SODIUM [Suspect]
     Active Substance: PANTOPRAZOLE SODIUM
     Indication: Gastritis prophylaxis
     Dosage: THROUGHOUT PREGNANCY
     Dates: start: 202312, end: 202409
  6. FEXOFENADINE HYDROCHLORIDE [Suspect]
     Active Substance: FEXOFENADINE HYDROCHLORIDE
     Indication: Seasonal allergy
     Dosage: THROUGHOUT PREGNANCY
     Dates: start: 202312, end: 202409
  7. ELEXACAFTOR\IVACAFTOR\TEZACAFTOR [Suspect]
     Active Substance: ELEXACAFTOR\IVACAFTOR\TEZACAFTOR
     Indication: Cystic fibrosis
     Dosage: TOTAL OF ALL ACTIVE INGREDIENTS 450 MG
     Dates: start: 202312, end: 202409
  8. Mucoclear 3% [Concomitant]
     Indication: Cystic fibrosis
     Dates: start: 202312, end: 202409
  9. PERTUSSIS VACCINE [Concomitant]
     Active Substance: PERTUSSIS VACCINE
     Indication: Immunisation
     Dosage: UNKNOWN WHEN APPLIED
  10. INFLUENZA VIRUS VACCINE [Concomitant]
     Active Substance: INFLUENZA VIRUS VACCINE
     Indication: Immunisation
     Dosage: UNKNOWN WHEN APPLIED

REACTIONS (3)
  - Small for dates baby [Unknown]
  - Microcephaly [Unknown]
  - Foetal exposure during pregnancy [Unknown]

NARRATIVE: CASE EVENT DATE: 20240901
